FAERS Safety Report 16537879 (Version 2)
Quarter: 2019Q3

REPORT INFORMATION
  Report Type: Spontaneous
  Country: CN (occurrence: CN)
  Receive Date: 20190708
  Receipt Date: 20190802
  Transmission Date: 20191004
  Serious: Yes (Other)
  Sender: FDA-Public Use
  Company Number: CN-ASTRAZENECA-2019SE96421

PATIENT
  Sex: Female

DRUGS (2)
  1. IRESSA [Suspect]
     Active Substance: GEFITINIB
     Indication: NON-SMALL CELL LUNG CANCER
     Route: 048
  2. TRADITIONAL CHINESE MEDICINE NOS [Concomitant]
     Active Substance: HERBALS
     Indication: ABDOMINAL DISCOMFORT
     Dosage: RAL, DAILY DOSAGE: TWO TIMES A DAY, FORMULA: GRAIN

REACTIONS (2)
  - Drug resistance [Unknown]
  - Malignant neoplasm progression [Unknown]
